FAERS Safety Report 17030565 (Version 1)
Quarter: 2019Q4

REPORT INFORMATION
  Report Type: Spontaneous
  Country: US (occurrence: US)
  Receive Date: 20191114
  Receipt Date: 20191114
  Transmission Date: 20200122
  Serious: No
  Sender: FDA-Public Use
  Company Number: US-ALLERGAN-1858412US

PATIENT
  Sex: Female
  Weight: 61.22 kg

DRUGS (3)
  1. XALATAN [Concomitant]
     Active Substance: LATANOPROST
  2. DILANTIN [Concomitant]
     Active Substance: PHENYTOIN
     Dosage: UNK UNK, QPM
  3. COMBIGAN [Suspect]
     Active Substance: BRIMONIDINE TARTRATE\TIMOLOL MALEATE
     Indication: EYE INFECTION
     Dosage: 2 GTT, BID
     Route: 047
     Dates: start: 20181129

REACTIONS (5)
  - Asthenopia [Not Recovered/Not Resolved]
  - Somnolence [Not Recovered/Not Resolved]
  - Off label use [Unknown]
  - Product dropper issue [Unknown]
  - Incorrect dose administered [Unknown]
